FAERS Safety Report 22011193 (Version 2)
Quarter: 2023Q1

REPORT INFORMATION
  Report Type: Spontaneous
  Country: US (occurrence: US)
  Receive Date: 20230220
  Receipt Date: 20230310
  Transmission Date: 20230417
  Serious: No
  Sender: FDA-Public Use
  Company Number: US-SA-SAC20230215000051

PATIENT
  Age: 45 Year
  Sex: Female

DRUGS (22)
  1. DUPIXENT [Suspect]
     Active Substance: DUPILUMAB
     Indication: Asthma
     Dosage: 400 MG, 1X
     Route: 058
     Dates: start: 20230131
  2. DUPIXENT [Suspect]
     Active Substance: DUPILUMAB
     Dosage: 200 MG, QOW
     Route: 058
     Dates: start: 2023
  3. ALDACTONE [Concomitant]
     Active Substance: SPIRONOLACTONE
  4. ALLEGRA ALLERGY [Concomitant]
     Active Substance: FEXOFENADINE HYDROCHLORIDE
  5. AMLODIPINE [Concomitant]
     Active Substance: AMLODIPINE BESYLATE
  6. AZELASTINE [Concomitant]
     Active Substance: AZELASTINE
  7. BUDESONIDE\FORMOTEROL\GLYCOPYRRONIUM [Concomitant]
     Active Substance: BUDESONIDE\FORMOTEROL\GLYCOPYRRONIUM
  8. BUDESONIDE [Concomitant]
     Active Substance: BUDESONIDE
  9. FAMOTIDINE [Concomitant]
     Active Substance: FAMOTIDINE
  10. MOMETASONE FUROATE [Concomitant]
     Active Substance: MOMETASONE FUROATE
  11. FLUCONAZOLE [Concomitant]
     Active Substance: FLUCONAZOLE
  12. FLUTICASONE [Concomitant]
     Active Substance: FLUTICASONE
  13. ALBUTEROL\IPRATROPIUM [Concomitant]
     Active Substance: ALBUTEROL\IPRATROPIUM
  14. ALDACTONE [Concomitant]
     Active Substance: SPIRONOLACTONE
  15. LISINOPRIL [Concomitant]
     Active Substance: LISINOPRIL
  16. MONTELUKAST [Concomitant]
     Active Substance: MONTELUKAST SODIUM
  17. NYSTATIN [Concomitant]
     Active Substance: NYSTATIN
  18. PREDNISONE [Concomitant]
     Active Substance: PREDNISONE
  19. SINGULAIR [Concomitant]
     Active Substance: MONTELUKAST SODIUM
  20. AZELASTINE HYDROCHLORIDE\FLUTICASONE PROPIONATE [Concomitant]
     Active Substance: AZELASTINE HYDROCHLORIDE\FLUTICASONE PROPIONATE
  21. POTASSIUM CHLORIDE [Concomitant]
     Active Substance: POTASSIUM CHLORIDE
  22. FLONASE [Concomitant]
     Active Substance: FLUTICASONE PROPIONATE

REACTIONS (3)
  - Asthma [Not Recovered/Not Resolved]
  - Drug ineffective [Unknown]
  - Impaired quality of life [Unknown]

NARRATIVE: CASE EVENT DATE: 20230209
